FAERS Safety Report 7887122-8 (Version None)
Quarter: 2011Q4

REPORT INFORMATION
  Report Type: 
  Country: None (occurrence: None)
  Receive Date: 20111102
  Receipt Date: 20110715
  Transmission Date: 20120403
  Serious: No
  Sender: FDA-Public Use
  Company Number: US-AMGEN-USASP2011036051

PATIENT
  Age: 46 Year
  Sex: Female
  Weight: 41.723 kg

DRUGS (8)
  1. NEXIUM [Concomitant]
  2. CALCIUM [Concomitant]
  3. NUVIGIL [Concomitant]
  4. ENBREL [Suspect]
     Dosage: 50 MG, QWK
  5. TRAMADOL HCL [Concomitant]
  6. CELEXA [Concomitant]
  7. PRISTIQ [Concomitant]
  8. ASPIRIN [Concomitant]

REACTIONS (1)
  - RHEUMATOID ARTHRITIS [None]
